FAERS Safety Report 13267933 (Version 1)
Quarter: 2017Q1

REPORT INFORMATION
  Report Type: Spontaneous
  Country: US (occurrence: US)
  Receive Date: 20170224
  Receipt Date: 20170224
  Transmission Date: 20170428
  Serious: Yes (Life-Threatening, Hospitalization)
  Sender: FDA-Public Use
  Company Number: None

PATIENT
  Age: 64 Year
  Sex: Male
  Weight: 118.2 kg

DRUGS (2)
  1. METOPROLOL. [Suspect]
     Active Substance: METOPROLOL
     Indication: CARDIAC FAILURE CONGESTIVE
     Route: 048
     Dates: end: 20170222
  2. METOPROLOL. [Suspect]
     Active Substance: METOPROLOL
     Indication: ATRIAL FLUTTER
     Route: 048
     Dates: end: 20170222

REACTIONS (6)
  - Bradycardia [None]
  - Atrial flutter [None]
  - Incorrect dose administered [None]
  - Cardiac failure congestive [None]
  - Atrioventricular block [None]
  - Drug prescribing error [None]

NARRATIVE: CASE EVENT DATE: 20170217
